FAERS Safety Report 8518770-X (Version None)
Quarter: 2012Q3

REPORT INFORMATION
  Report Type: 
  Country: None (occurrence: None)
  Receive Date: 20120718
  Receipt Date: 20120713
  Transmission Date: 20120928
  Serious: Yes (Death, Hospitalization)
  Sender: FDA-Public Use
  Company Number: PHHY2011CA32425

PATIENT
  Sex: Male

DRUGS (1)
  1. GLEEVEC [Suspect]
     Indication: GASTROINTESTINAL STROMAL TUMOUR
     Dosage: 400 MG, UNK
     Route: 048
     Dates: start: 20110301

REACTIONS (4)
  - DEATH [None]
  - BLADDER STENOSIS [None]
  - DYSURIA [None]
  - URETHRAL OBSTRUCTION [None]
